FAERS Safety Report 9912860 (Version 1)
Quarter: 2014Q1

REPORT INFORMATION
  Report Type: Spontaneous
  Country: FR (occurrence: None)
  Receive Date: 20140214
  Receipt Date: 20140214
  Transmission Date: 20141002
  Serious: Yes (Hospitalization)
  Sender: FDA-Public Use
  Company Number: SYM-2014-16711

PATIENT
  Age: 42 Year
  Sex: Female

DRUGS (10)
  1. FLAGYL [Suspect]
     Indication: PRODUCT USED FOR UNKNOWN INDICATION
     Route: 048
     Dates: start: 20131217, end: 20131223
  2. CONTRAMAL [Suspect]
     Indication: PRODUCT USED FOR UNKNOWN INDICATION
     Route: 048
     Dates: start: 20131217, end: 20131224
  3. DEPAKOTE [Suspect]
     Indication: PRODUCT USED FOR UNKNOWN INDICATION
     Route: 048
     Dates: start: 20131211, end: 20131223
  4. DOLIPRANE [Suspect]
     Indication: PRODUCT USED FOR UNKNOWN INDICATION
     Route: 048
     Dates: start: 20131217, end: 20131224
  5. DALACIN [Suspect]
     Indication: PRODUCT USED FOR UNKNOWN INDICATION
     Route: 048
     Dates: start: 20131217, end: 20131224
  6. LEVOTHYROX (LEVOTHYROXINE SODIUM) [Concomitant]
  7. SERESTA (OXAZEPAM) [Concomitant]
  8. TERCIAN (CYAMEMAZINE) [Concomitant]
  9. LEPTICUR (TROPATEPINE HYDROCHLORIDE) [Concomitant]
  10. XEROQUEL (QUETIAPINE FUMARATE) [Concomitant]

REACTIONS (2)
  - Cholestasis [None]
  - Hepatocellular injury [None]
